FAERS Safety Report 25349190 (Version 1)
Quarter: 2025Q2

REPORT INFORMATION
  Report Type: Spontaneous
  Country: US (occurrence: US)
  Receive Date: 20250522
  Receipt Date: 20250522
  Transmission Date: 20250716
  Serious: No
  Sender: SANOFI AVENTIS
  Company Number: US-SA-2025SA146192

PATIENT
  Age: 65 Year
  Sex: Female
  Weight: 87.73 kg

DRUGS (5)
  1. DUPIXENT [Suspect]
     Active Substance: DUPILUMAB
     Indication: Dermatitis atopic
     Route: 058
     Dates: start: 202505, end: 202505
  2. TACROLIMUS [Concomitant]
     Active Substance: TACROLIMUS
  3. PREDNISONE [Concomitant]
     Active Substance: PREDNISONE
  4. CEPHALEXIN [Concomitant]
     Active Substance: CEPHALEXIN
  5. TRIAMCINOLONE ACETONIDE [Concomitant]
     Active Substance: TRIAMCINOLONE ACETONIDE

REACTIONS (4)
  - Dry skin [Unknown]
  - Skin exfoliation [Unknown]
  - Erythema [Unknown]
  - Injection site pain [Unknown]

NARRATIVE: CASE EVENT DATE: 20250501
